FAERS Safety Report 5073031-9 (Version None)
Quarter: 2006Q3

REPORT INFORMATION
  Report Type: 
  Country: None (occurrence: None)
  Receive Date: 20060802
  Receipt Date: 20060725
  Transmission Date: 20061208
  Serious: Yes (Hospitalization)
  Sender: FDA-Public Use
  Company Number: 2006-06-0118

PATIENT
  Age: 34 Year
  Sex: Male

DRUGS (4)
  1. CELESTINE (BETAMETHASOME) ^LIKE CELESTONE ORAL SOLUTION ORAL, NOT OTHE [Suspect]
     Indication: PHARYNGITIS
     Dosage: ORAL
     Route: 048
     Dates: start: 20060216, end: 20060218
  2. ACETAMINOPHEN [Suspect]
     Indication: PHARYNGITIS
     Dosage: ORAL
     Route: 048
     Dates: start: 20060216, end: 20060223
  3. HELICIDINE (MUCOGLYCOPROTEIN) [Concomitant]
  4. CARBOCYSTEINE [Concomitant]

REACTIONS (3)
  - ERYTHEMA MULTIFORME [None]
  - MYCOPLASMA SEROLOGY POSITIVE [None]
  - STEVENS-JOHNSON SYNDROME [None]
